FAERS Safety Report 12743834 (Version 1)
Quarter: 2016Q3

REPORT INFORMATION
  Report Type: Report from Study
  Country: US (occurrence: US)
  Receive Date: 20160914
  Receipt Date: 20160914
  Transmission Date: 20161109
  Serious: Yes (Other)
  Sender: FDA-Public Use
  Company Number: US-PFIZER INC-2016419600

PATIENT

DRUGS (3)
  1. DOXORUBICIN [Concomitant]
     Active Substance: DOXORUBICIN
     Indication: OSTEOSARCOMA
     Dosage: 37.5 MG/M(2) PER DAY ON DAYS 1 AND 2 (ON WEEKS 1 AND 6)
  2. CISPLATIN. [Concomitant]
     Active Substance: CISPLATIN
     Indication: OSTEOSARCOMA
     Dosage: 120 MG/M(2) PER DAY ON DAYS 1 AND 2 (ON WEEKS 1 AND 6)
  3. METHOTREXATE SODIUM. [Suspect]
     Active Substance: METHOTREXATE SODIUM
     Indication: OSTEOSARCOMA
     Dosage: HIGH-DOSE, 12 G/M(2) OVER 4 H

REACTIONS (1)
  - Bone infarction [Unknown]
